FAERS Safety Report 12074895 (Version 1)
Quarter: 2016Q1

REPORT INFORMATION
  Report Type: Spontaneous
  Country: US (occurrence: US)
  Receive Date: 20160212
  Receipt Date: 20160212
  Transmission Date: 20160526
  Serious: Yes (Other)
  Sender: FDA-Public Use
  Company Number: US-TEVA-634450USA

PATIENT
  Age: 53 Year
  Sex: Female

DRUGS (2)
  1. PHENTERMINE. [Suspect]
     Active Substance: PHENTERMINE
     Indication: OBESITY
     Route: 065
  2. FENFLURAMINE [Suspect]
     Active Substance: FENFLURAMINE
     Indication: OBESITY
     Route: 065

REACTIONS (3)
  - Cardiac valve disease [Unknown]
  - Mitral valve incompetence [Unknown]
  - Acute myocardial infarction [Unknown]
